FAERS Safety Report 19990723 (Version 1)
Quarter: 2021Q4

REPORT INFORMATION
  Report Type: Spontaneous
  Country: US (occurrence: US)
  Receive Date: 20211023
  Receipt Date: 20211023
  Transmission Date: 20220303
  Serious: Yes (Death)
  Sender: FDA-Public Use
  Company Number: None

PATIENT
  Age: 71 Year
  Sex: Female
  Weight: 56 kg

DRUGS (1)
  1. CISPLATIN [Suspect]
     Active Substance: CISPLATIN
     Dates: end: 20211004

REACTIONS (9)
  - Dizziness [None]
  - Mucosal inflammation [None]
  - Dysphagia [None]
  - Emotional distress [None]
  - Electrolyte imbalance [None]
  - Blood potassium decreased [None]
  - Blood magnesium decreased [None]
  - Cardiac arrest [None]
  - Pulmonary embolism [None]

NARRATIVE: CASE EVENT DATE: 20211019
